FAERS Safety Report 15131686 (Version 1)
Quarter: 2018Q3

REPORT INFORMATION
  Report Type: Spontaneous
  Country: IT (occurrence: IT)
  Receive Date: 20180711
  Receipt Date: 20180711
  Transmission Date: 20181010
  Serious: Yes (Other)
  Sender: FDA-Public Use
  Company Number: IT-MYLANLABS-2018M1051695

PATIENT
  Age: 42 Year
  Sex: Male

DRUGS (2)
  1. FLUMAZENIL. [Suspect]
     Active Substance: FLUMAZENIL
     Indication: DETOXIFICATION
     Dosage: LOW?DOSE SLOW SUBCUTANEOUS INFUSION, 40.5 ?G/HOUR FOR 24 HOURS/DAY
     Route: 058
  2. VALPROIC ACID. [Suspect]
     Active Substance: VALPROIC ACID
     Indication: PROPHYLAXIS
     Dosage: 1500 MG, UNK
     Route: 065

REACTIONS (1)
  - Epilepsy [Recovered/Resolved]
